FAERS Safety Report 17646937 (Version 1)
Quarter: 2020Q2

REPORT INFORMATION
  Report Type: Spontaneous
  Country: FR (occurrence: FR)
  Receive Date: 20200408
  Receipt Date: 20200408
  Transmission Date: 20200713
  Serious: Yes (Life-Threatening, Hospitalization)
  Sender: FDA-Public Use
  Company Number: FR-PFIZER INC-2020140279

PATIENT
  Age: 14 Year
  Sex: Female
  Weight: 40 kg

DRUGS (8)
  1. NEFOPAM MEDISOL [Suspect]
     Active Substance: NEFOPAM HYDROCHLORIDE
     Indication: PERIOPERATIVE ANALGESIA
     Dosage: 20 MG, UNK
     Route: 042
     Dates: start: 20191217, end: 20191217
  2. PROPOFOL LIPURO [Suspect]
     Active Substance: PROPOFOL
     Indication: GENERAL ANAESTHESIA
     Dosage: 110 MG, UNK
     Route: 042
     Dates: start: 20191217, end: 20191217
  3. LIDOCAINE ADRENALINE AGUETTANT [Suspect]
     Active Substance: EPINEPHRINE\LIDOCAINE
     Dosage: 20 MG, UNK
     Route: 042
     Dates: start: 20191217, end: 20191217
  4. ZYVOXID [Suspect]
     Active Substance: LINEZOLID
     Indication: ANTIBIOTIC PROPHYLAXIS
     Dosage: 600 MG, UNK
     Route: 042
     Dates: start: 20191217, end: 20191217
  5. ROCURONIUM [Suspect]
     Active Substance: ROCURONIUM BROMIDE
     Indication: GENERAL ANAESTHESIA
     Dosage: 20 MG, UNK
     Route: 042
     Dates: start: 20191217, end: 20191217
  6. SUFENTANIL MYLAN [Suspect]
     Active Substance: SUFENTANIL
     Indication: GENERAL ANAESTHESIA
     Dosage: 10 UG, UNK
     Route: 042
     Dates: start: 20191217, end: 20191217
  7. PIPERACILLINE/TAZOBACTAM PANPHARMA [Suspect]
     Active Substance: PIPERACILLIN SODIUM\TAZOBACTAM SODIUM
     Indication: ANTIBIOTIC PROPHYLAXIS
     Dosage: 4 G, UNK
     Route: 042
     Dates: start: 20191217, end: 20191217
  8. PROPACETAMOL MYLAN [Suspect]
     Active Substance: PROPACETAMOL
     Indication: PERIOPERATIVE ANALGESIA
     Dosage: 1 G, UNK
     Route: 042
     Dates: start: 20191217, end: 20191217

REACTIONS (4)
  - Off label use [Unknown]
  - Product use in unapproved indication [Unknown]
  - Type I hypersensitivity [Recovered/Resolved]
  - Product use issue [Unknown]

NARRATIVE: CASE EVENT DATE: 20191217
